FAERS Safety Report 5256630-0 (Version None)
Quarter: 2007Q1

REPORT INFORMATION
  Report Type: 
  Country: None (occurrence: None)
  Receive Date: 20070306
  Receipt Date: 20070112
  Transmission Date: 20070707
  Serious: Yes (Death)
  Sender: FDA-Public Use
  Company Number: JP-SANOFI-SYNTHELABO-A01200610185

PATIENT
  Sex: Male

DRUGS (12)
  1. PAROXETINE HCL [Suspect]
     Indication: DYSTHYMIC DISORDER
     Route: 048
     Dates: start: 20060126, end: 20060126
  2. PAROXETINE HCL [Suspect]
     Indication: OVERDOSE
     Route: 048
     Dates: start: 20060126, end: 20060126
  3. AMITRIPTYLINE HCL [Suspect]
     Indication: OVERDOSE
     Route: 048
     Dates: start: 20060126, end: 20060126
  4. AMITRIPTYLINE HCL [Suspect]
     Indication: DYSTHYMIC DISORDER
     Route: 048
     Dates: start: 20060126, end: 20060126
  5. ETHYL LOFLAZEPATE [Suspect]
     Indication: OVERDOSE
     Route: 048
     Dates: start: 20060126, end: 20060126
  6. ETHYL LOFLAZEPATE [Suspect]
     Indication: DYSTHYMIC DISORDER
     Route: 048
     Dates: start: 20060126, end: 20060126
  7. MYSLEE [Suspect]
     Indication: OVERDOSE
     Route: 048
     Dates: start: 20060126, end: 20060126
  8. MYSLEE [Suspect]
     Indication: DYSTHYMIC DISORDER
     Route: 048
     Dates: start: 20060126, end: 20060126
  9. MYSLEE [Suspect]
     Dosage: UNK
     Route: 048
  10. MYSLEE [Suspect]
     Dosage: UNK
     Route: 048
  11. FLUNITRAZEPAM [Suspect]
     Indication: DYSTHYMIC DISORDER
     Route: 048
     Dates: start: 20060126, end: 20060126
  12. FLUNITRAZEPAM [Suspect]
     Indication: OVERDOSE
     Route: 048
     Dates: start: 20060126, end: 20060126

REACTIONS (10)
  - BLOOD PRESSURE IMMEASURABLE [None]
  - CARDIAC ARREST [None]
  - CARDIO-RESPIRATORY ARREST [None]
  - DEPRESSED LEVEL OF CONSCIOUSNESS [None]
  - ELECTROCARDIOGRAM QRS COMPLEX PROLONGED [None]
  - ELECTROMECHANICAL DISSOCIATION [None]
  - HYPERKALAEMIA [None]
  - MULTIPLE DRUG OVERDOSE INTENTIONAL [None]
  - PYREXIA [None]
  - VENTRICULAR TACHYCARDIA [None]
